FAERS Safety Report 12268811 (Version 1)
Quarter: 2016Q2

REPORT INFORMATION
  Report Type: Spontaneous
  Country: JP (occurrence: JP)
  Receive Date: 20160414
  Receipt Date: 20160414
  Transmission Date: 20160815
  Serious: Yes (Other)
  Sender: FDA-Public Use
  Company Number: JP-SA-2016SA072469

PATIENT
  Age: 79 Year
  Sex: Female

DRUGS (6)
  1. CABERGOLINE. [Suspect]
     Active Substance: CABERGOLINE
     Indication: RESTLESS LEGS SYNDROME
     Route: 048
  2. CABERGOLINE. [Suspect]
     Active Substance: CABERGOLINE
     Indication: PAIN IN EXTREMITY
     Route: 048
  3. LYRICA [Suspect]
     Active Substance: PREGABALIN
     Indication: PAIN IN EXTREMITY
     Route: 048
  4. ZOLPIDEM TARTRATE. [Suspect]
     Active Substance: ZOLPIDEM TARTRATE
     Route: 048
  5. LYRICA [Suspect]
     Active Substance: PREGABALIN
     Indication: RESTLESS LEGS SYNDROME
     Route: 048
  6. CONSTAN [Suspect]
     Active Substance: ALPRAZOLAM
     Route: 048

REACTIONS (1)
  - Delirium [Unknown]
